FAERS Safety Report 8499085-5 (Version None)
Quarter: 2012Q2

REPORT INFORMATION
  Report Type: 
  Country: None (occurrence: None)
  Receive Date: 20120405
  Receipt Date: 20100322
  Transmission Date: 20120825
  Serious: Yes (Other)
  Sender: FDA-Public Use
  Company Number: PHEH2010US03163

PATIENT
  Age: 81 Year
  Sex: Female
  Weight: 130 kg

DRUGS (17)
  1. VITAMIN D [Concomitant]
  2. PREDNISONE TAB [Concomitant]
  3. RECLAST [Suspect]
     Dates: start: 20100312, end: 20100312
  4. VITAMIN C (ASCROBIC ACID) [Concomitant]
  5. ATENOLOL [Concomitant]
  6. NORVASC [Concomitant]
  7. RHINOCORT TOPINASAL (BUDESONIDE) [Concomitant]
  8. HYDROCHLOROTHIAZIDE [Concomitant]
  9. LISINOPRIL (LISINIOPRIL) [Concomitant]
  10. METHOTREXATE SODIUM [Concomitant]
  11. OMEPRAZOLE [Concomitant]
  12. CALCIUM CARBONATE [Concomitant]
  13. TYLENOL W/ CODEINE [Concomitant]
  14. FOLIC ACID [Concomitant]
  15. MULTIVITAMINS (ASCORBIC ACID, ERGOCALCIFEROL, FOLIC ACID, NICOTINAMIDE [Concomitant]
  16. SIMVASTATIN [Concomitant]
  17. FLAXSEED OIL (LINUM USITATISSIMUM SEED OIL) [Concomitant]

REACTIONS (3)
  - BACK PAIN [None]
  - ARTHRITIS [None]
  - BONE PAIN [None]
